FAERS Safety Report 10023176 (Version 1)
Quarter: 2014Q1

REPORT INFORMATION
  Report Type: Spontaneous
  Country: IT (occurrence: IT)
  Receive Date: 20140320
  Receipt Date: 20140320
  Transmission Date: 20141002
  Serious: Yes (Other)
  Sender: FDA-Public Use
  Company Number: IT-PFIZER INC-2014078568

PATIENT
  Age: 76 Year
  Sex: Male

DRUGS (1)
  1. TORVAST [Suspect]
     Indication: HYPERCHOLESTEROLAEMIA
     Dosage: 20 MG, DAILY
     Route: 048
     Dates: start: 20140130, end: 20140303

REACTIONS (2)
  - Rectal haemorrhage [Recovered/Resolved]
  - Myalgia [Recovered/Resolved]
